FAERS Safety Report 8902866 (Version 2)
Quarter: 2012Q4

REPORT INFORMATION
  Report Type: 
  Country: US (occurrence: US)
  Receive Date: 20121112
  Receipt Date: 20121226
  Transmission Date: 20130627
  Serious: No
  Sender: FDA-Public Use
  Company Number: US-PFIZER INC-2012281635

PATIENT
  Age: 60 Year
  Sex: Female
  Weight: 56.24 kg

DRUGS (11)
  1. LYRICA [Suspect]
     Indication: BACK PAIN
     Dosage: 150 mg, 3x/day
     Route: 048
     Dates: start: 2011
  2. LEVOXYL [Concomitant]
     Indication: THYROID DISORDER
     Dosage: 100 ug, daily
  3. ESTRACE [Concomitant]
     Indication: ENDOCRINE DISORDER
     Dosage: 2 mg, daily
  4. LISINOPRIL [Concomitant]
     Indication: BLOOD PRESSURE ABNORMAL
     Dosage: 20 mg, daily
  5. KLONOPIN [Concomitant]
     Indication: SLEEP PROBLEM
     Dosage: 1 mg, 3x/day
  6. NORVASC [Concomitant]
     Indication: BLOOD PRESSURE ABNORMAL
     Dosage: 5 mg, daily
  7. PRISTIQ [Concomitant]
     Indication: DEPRESSION
     Dosage: 50 mg, 1x/day
  8. PHENERGAN [Concomitant]
     Indication: NAUSEA
     Dosage: 25 mg, as needed
  9. LOMOTIL [Concomitant]
     Indication: DIARRHEA
     Dosage: UNK, as needed
  10. SOMA [Concomitant]
     Indication: MUSCLE RELAXANT
     Dosage: UNK, as needed
  11. NORCO [Concomitant]
     Indication: PAIN
     Dosage: 10/325 mg, as needed

REACTIONS (4)
  - Poor quality drug administered [Unknown]
  - Balance disorder [Recovering/Resolving]
  - Nervousness [Recovering/Resolving]
  - Dysarthria [Recovering/Resolving]
